FAERS Safety Report 21822402 (Version 2)
Quarter: 2023Q1

REPORT INFORMATION
  Report Type: Spontaneous
  Country: BR (occurrence: BR)
  Receive Date: 20230105
  Receipt Date: 20230309
  Transmission Date: 20230417
  Serious: Yes (Other)
  Sender: FDA-Public Use
  Company Number: BR-GLAXOSMITHKLINE-BR2020AMR189660

PATIENT

DRUGS (4)
  1. BENLYSTA [Suspect]
     Active Substance: BELIMUMAB
     Indication: Systemic lupus erythematosus
     Dosage: 120 G, Z, EVERY 28 DAYS
     Route: 042
     Dates: start: 20200902
  2. AMOXICILLIN\CLAVULANATE POTASSIUM [Suspect]
     Active Substance: AMOXICILLIN\CLAVULANATE POTASSIUM
     Indication: Product used for unknown indication
     Dosage: UNK
  3. ALBUTEROL [Suspect]
     Active Substance: ALBUTEROL
     Indication: Product used for unknown indication
     Dosage: UNK
  4. BECLOMETHASONE DIPROPIONATE [Suspect]
     Active Substance: BECLOMETHASONE DIPROPIONATE
     Indication: Product used for unknown indication
     Dosage: UNK

REACTIONS (13)
  - Nephrolithiasis [Unknown]
  - Varicose vein [Unknown]
  - Varicose vein ruptured [Unknown]
  - Bronchitis [Recovered/Resolved]
  - Renal pain [Unknown]
  - Cough [Recovered/Resolved]
  - Influenza [Recovered/Resolved]
  - Fatigue [Recovered/Resolved]
  - Wheezing [Recovered/Resolved]
  - Drug ineffective [Unknown]
  - Product availability issue [Unknown]
  - Inappropriate schedule of product administration [Unknown]
  - Product dose omission issue [Not Recovered/Not Resolved]

NARRATIVE: CASE EVENT DATE: 20200922
